FAERS Safety Report 9648355 (Version 2)
Quarter: 2013Q4

REPORT INFORMATION
  Report Type: Report from Study
  Country: US (occurrence: US)
  Receive Date: 20131028
  Receipt Date: 20131028
  Transmission Date: 20140711
  Serious: Yes (Hospitalization)
  Sender: FDA-Public Use
  Company Number: US-SA-2013SA101202

PATIENT
  Age: 73 Year
  Sex: Male
  Weight: 80.73 kg

DRUGS (1)
  1. CABAZITAXEL [Suspect]
     Indication: BLADDER CANCER
     Route: 065
     Dates: start: 20130923, end: 20130923

REACTIONS (4)
  - Hydronephrosis [Recovered/Resolved]
  - Pyrexia [Recovering/Resolving]
  - Diarrhoea [Recovering/Resolving]
  - Infection [Recovering/Resolving]
